FAERS Safety Report 8494993-3 (Version None)
Quarter: 2012Q3

REPORT INFORMATION
  Report Type: 
  Country: None (occurrence: None)
  Receive Date: 20120709
  Receipt Date: 20120626
  Transmission Date: 20120928
  Serious: Yes (Other)
  Sender: FDA-Public Use
  Company Number: US-JNJFOC-20120614325

PATIENT
  Sex: Female
  Weight: 74 kg

DRUGS (2)
  1. FENTANYL-100 [Suspect]
     Indication: PAIN
     Route: 062
     Dates: start: 20120401, end: 20120606
  2. FENTANYL-100 [Suspect]
     Indication: PAIN
     Route: 062
     Dates: start: 20120607, end: 20120610

REACTIONS (7)
  - BALANCE DISORDER [None]
  - APPLICATION SITE PRURITUS [None]
  - MALAISE [None]
  - PRODUCT QUALITY ISSUE [None]
  - DELUSION [None]
  - CONFUSIONAL STATE [None]
  - DISORIENTATION [None]
